FAERS Safety Report 7152298-7 (Version None)
Quarter: 2010Q4

REPORT INFORMATION
  Report Type: 
  Country: None (occurrence: None)
  Receive Date: 20101123
  Receipt Date: 20101116
  Transmission Date: 20110411
  Serious: Yes (Other)
  Sender: FDA-Public Use
  Company Number: 2010MA004599

PATIENT
  Age: 7 Year
  Sex: Female

DRUGS (1)
  1. IBUPROFEN [Suspect]
     Indication: PYREXIA
     Dosage: 510 MG;
     Dates: start: 20080501

REACTIONS (4)
  - NEUTROPHIL MORPHOLOGY ABNORMAL [None]
  - NEUTROPHIL PELGER-HUET ANOMALY PRESENT [None]
  - OVERDOSE [None]
  - PYREXIA [None]
